FAERS Safety Report 5869018-6 (Version None)
Quarter: 2008Q3

REPORT INFORMATION
  Report Type: 
  Country: None (occurrence: None)
  Receive Date: 20080903
  Receipt Date: 20080826
  Transmission Date: 20090109
  Serious: Yes (Hospitalization)
  Sender: FDA-Public Use
  Company Number: A0744473A

PATIENT
  Age: 77 Year
  Sex: Female

DRUGS (6)
  1. ADVAIR DISKUS 100/50 [Suspect]
     Indication: ASTHMA
     Dosage: 2PUFF TWICE PER DAY
     Route: 055
     Dates: start: 20080804, end: 20080823
  2. ADVAIR DISKUS 100/50 [Suspect]
     Indication: ASTHMA
     Route: 065
  3. MAXAIR [Concomitant]
  4. THEOPHYLLINE [Concomitant]
  5. VITAMIN D [Concomitant]
  6. CALCIUM [Concomitant]

REACTIONS (2)
  - DYSPNOEA [None]
  - FATIGUE [None]
